FAERS Safety Report 8814938 (Version 1)
Quarter: 2012Q4

REPORT INFORMATION
  Report Type: 
  Country: US (occurrence: US)
  Receive Date: 20120928
  Receipt Date: 20120928
  Transmission Date: 20130627
  Serious: Yes (Other)
  Sender: FDA-Public Use
  Company Number: US-BRISTOL-MYERS SQUIBB COMPANY-16792731

PATIENT
  Age: 69 Year
  Sex: Female

DRUGS (3)
  1. ERBITUX [Suspect]
     Indication: HEAD AND NECK CANCER
  2. CISPLATIN [Suspect]
     Indication: HEAD AND NECK CANCER
     Dates: start: 20120813, end: 20120817
  3. 5-FLUOROURACIL [Suspect]
     Indication: HEAD AND NECK CANCER
     Dates: start: 20120813, end: 20120817

REACTIONS (15)
  - White blood cell count decreased [Unknown]
  - Platelet count decreased [Unknown]
  - Dyspnoea [Unknown]
  - Diarrhoea [Unknown]
  - Nausea [Unknown]
  - Vomiting [Unknown]
  - Pyrexia [Unknown]
  - Mucosal inflammation [Unknown]
  - Blood glucose increased [Unknown]
  - Fatigue [Unknown]
  - Muscle spasms [Unknown]
  - Malaise [Unknown]
  - Speech disorder [Unknown]
  - Oropharyngeal pain [Unknown]
  - Alopecia [Unknown]
